FAERS Safety Report 4296344-7 (Version None)
Quarter: 2004Q1

REPORT INFORMATION
  Report Type: 
  Country: None (occurrence: None)
  Receive Date: 20040217
  Receipt Date: 20040206
  Transmission Date: 20041129
  Serious: Yes (Hospitalization)
  Sender: FDA-Public Use
  Company Number: PHNU2004DE00823

PATIENT
  Age: 11 Year
  Sex: Male
  Weight: 22 kg

DRUGS (1)
  1. RITALIN [Suspect]
     Dosage: 400 MG, ONCE/SINGLE
     Route: 048

REACTIONS (6)
  - AGITATION [None]
  - GENERAL PHYSICAL HEALTH DETERIORATION [None]
  - HEART RATE INCREASED [None]
  - OVERDOSE [None]
  - POOR PERIPHERAL CIRCULATION [None]
  - TACHYCARDIA [None]
